FAERS Safety Report 17349424 (Version 2)
Quarter: 2020Q2

REPORT INFORMATION
  Report Type: Spontaneous
  Country: US (occurrence: US)
  Receive Date: 20200130
  Receipt Date: 20200417
  Transmission Date: 20200713
  Serious: Yes (Other)
  Sender: FDA-Public Use
  Company Number: US-BAYER-2020-015108

PATIENT
  Age: 18 Year
  Sex: Female
  Weight: 65.76 kg

DRUGS (1)
  1. KYLEENA [Suspect]
     Active Substance: LEVONORGESTREL
     Indication: CONTRACEPTION
     Dosage: 17.5 MCG/24HR, CONTINUOUSLY
     Route: 015
     Dates: start: 20170912, end: 20191015

REACTIONS (2)
  - Procedural haemorrhage [None]
  - Embedded device [None]

NARRATIVE: CASE EVENT DATE: 20170912
